FAERS Safety Report 9033933 (Version 1)
Quarter: 2013Q1

REPORT INFORMATION
  Report Type: Spontaneous
  Country: US (occurrence: US)
  Receive Date: 20130128
  Receipt Date: 20130128
  Transmission Date: 20140127
  Serious: Yes (Hospitalization, Other)
  Sender: FDA-Public Use
  Company Number: US-AMGEN-USASP2012067962

PATIENT
  Age: 58 Year
  Sex: Female

DRUGS (2)
  1. ENBREL [Suspect]
     Indication: PSORIATIC ARTHROPATHY
     Dosage: UNK UNK, QWK
     Dates: start: 20050301, end: 2006
  2. IODINE [Concomitant]
     Dosage: UNK

REACTIONS (4)
  - Cardiac valve disease [Recovered/Resolved]
  - Cardiac arrest [Recovered/Resolved]
  - Drug hypersensitivity [Recovered/Resolved]
  - Chest pain [Recovered/Resolved]
